FAERS Safety Report 21448403 (Version 10)
Quarter: 2023Q2

REPORT INFORMATION
  Report Type: Spontaneous
  Country: CA (occurrence: CA)
  Receive Date: 20221013
  Receipt Date: 20230605
  Transmission Date: 20230721
  Serious: Yes (Hospitalization, Other)
  Sender: FDA-Public Use
  Company Number: CA-CELLTRION INC.-2020CA029208

PATIENT

DRUGS (33)
  1. INFLECTRA [Suspect]
     Active Substance: INFLIXIMAB-DYYB
     Indication: Colitis ulcerative
     Dosage: 10 MG/KG AT 0 WEEKS THEN EVERY 4 WEEKS
     Route: 042
     Dates: start: 20200611, end: 20210120
  2. INFLECTRA [Suspect]
     Active Substance: INFLIXIMAB-DYYB
     Dosage: 10 MG/KG AT 0 WEEKS THEN EVERY 4 WEEKS
     Route: 042
     Dates: start: 20200912
  3. INFLECTRA [Suspect]
     Active Substance: INFLIXIMAB-DYYB
     Dosage: 10 MG/KG AT 0 WEEKS THEN EVERY 4 WEEKS
     Route: 042
     Dates: start: 20201120
  4. INFLECTRA [Suspect]
     Active Substance: INFLIXIMAB-DYYB
     Dosage: 10 MG/KG AT 0 WEEKS THEN EVERY 4 WEEKS
     Route: 042
     Dates: start: 20201217, end: 20201217
  5. INFLECTRA [Suspect]
     Active Substance: INFLIXIMAB-DYYB
     Dosage: 10 MG/KG AT 0 WEEKS THEN EVERY 4 WEEKS
     Route: 042
     Dates: start: 20210120
  6. INFLECTRA [Suspect]
     Active Substance: INFLIXIMAB-DYYB
     Dosage: 10 MG/KG AT 8 WEEK AFTER
     Route: 042
     Dates: start: 20210318
  7. INFLECTRA [Suspect]
     Active Substance: INFLIXIMAB-DYYB
     Dosage: 10 MG/KG EVERY 4 WEEKS / (RE-INDUCTION)
     Route: 042
     Dates: start: 20210318
  8. INFLECTRA [Suspect]
     Active Substance: INFLIXIMAB-DYYB
     Dosage: 10 MG/KG EVERY 4 WEEKS / (RE-INDUCTION)
     Route: 042
     Dates: start: 20210318, end: 20210414
  9. INFLECTRA [Suspect]
     Active Substance: INFLIXIMAB-DYYB
     Dosage: 10 MG/KG EVERY 4 WEEKS
     Route: 042
     Dates: start: 20210414
  10. INFLECTRA [Suspect]
     Active Substance: INFLIXIMAB-DYYB
     Dosage: 20 MG/KG, EVERY 4 WEEK
     Route: 042
     Dates: start: 20210522
  11. INFLECTRA [Suspect]
     Active Substance: INFLIXIMAB-DYYB
     Dosage: 20 MG/KG, EVERY 4 WEEK
     Route: 042
     Dates: start: 20210522
  12. INFLECTRA [Suspect]
     Active Substance: INFLIXIMAB-DYYB
     Dosage: 20 MG/KG, EVERY 4 WEEK
     Route: 042
     Dates: start: 20210522
  13. INFLECTRA [Suspect]
     Active Substance: INFLIXIMAB-DYYB
     Dosage: 20 MG/KG, EVERY 4 WEEK
     Route: 042
     Dates: start: 20210522, end: 20210810
  14. INFLECTRA [Suspect]
     Active Substance: INFLIXIMAB-DYYB
     Dosage: 20 MG/KG, EVERY 4 WEEK
     Route: 042
     Dates: start: 20210621
  15. INFLECTRA [Suspect]
     Active Substance: INFLIXIMAB-DYYB
     Dosage: 20 MG/KG, EVERY 4 WEEK / (7 WEEKS AND 1 DAY AFTER LAST INF/ PRESCRIBED INF ARE EVERY 4 WEEKS)
     Route: 042
     Dates: start: 20210810
  16. INFLECTRA [Suspect]
     Active Substance: INFLIXIMAB-DYYB
     Dosage: 400 MG, DOSAGE FREQUENCY: UNKNOWN
     Route: 042
     Dates: start: 20220929
  17. INFLECTRA [Suspect]
     Active Substance: INFLIXIMAB-DYYB
     Dosage: 400 MG, W2 REINDUCTION
     Route: 042
     Dates: start: 20221018
  18. INFLECTRA [Suspect]
     Active Substance: INFLIXIMAB-DYYB
     Dosage: 400 MG, W2 REINDUCTION (REINDUCTION W2, W6 AND EVERY 8 WEEKS )
     Route: 042
     Dates: start: 20221018
  19. INFLECTRA [Suspect]
     Active Substance: INFLIXIMAB-DYYB
     Dosage: 500 MG, REINDUCTION W2, W6 AND EVERY 8 WEEKS
     Route: 042
     Dates: start: 20221018, end: 20230116
  20. INFLECTRA [Suspect]
     Active Substance: INFLIXIMAB-DYYB
     Dosage: 400 MG, W2 REINDUCTION
     Route: 042
     Dates: start: 20221117
  21. INFLECTRA [Suspect]
     Active Substance: INFLIXIMAB-DYYB
     Dosage: 500 MG, REINDUCTION W2, W6 AND EVERY 8 WEEKS
     Route: 042
     Dates: start: 20230116
  22. INFLECTRA [Suspect]
     Active Substance: INFLIXIMAB-DYYB
     Dosage: 500 MG, EVERY 4 WEEKS
     Route: 042
     Dates: start: 20230213
  23. INFLECTRA [Suspect]
     Active Substance: INFLIXIMAB-DYYB
     Dosage: 500 MG, EVERY 4 WEEKS
     Route: 042
     Dates: start: 20230313
  24. INFLECTRA [Suspect]
     Active Substance: INFLIXIMAB-DYYB
     Dosage: 500 MG, EVERY 4 WEEKS
     Route: 042
     Dates: start: 20230412
  25. INFLECTRA [Suspect]
     Active Substance: INFLIXIMAB-DYYB
     Dosage: 500 MG, EVERY 4 WEEKS
     Route: 042
     Dates: start: 20230526
  26. BENADRYL [Concomitant]
     Active Substance: DIPHENHYDRAMINE HYDROCHLORIDE
     Indication: Premedication
     Dosage: 50 MG
     Dates: start: 20230213, end: 20230213
  27. HYDROCORTISONE [Concomitant]
     Active Substance: HYDROCORTISONE
     Indication: Premedication
     Dosage: 100 MG
     Dates: start: 20230213, end: 20230213
  28. HYDROMORPHONE [Concomitant]
     Active Substance: HYDROMORPHONE
     Dosage: 1 DF, AS NEEDED
  29. HYDROMORPHONE [Concomitant]
     Active Substance: HYDROMORPHONE
     Dosage: 1 DF DOSAGE INFO UNK
     Route: 065
  30. IMURAN [Concomitant]
     Active Substance: AZATHIOPRINE
     Dosage: 50 MG
     Route: 065
  31. PREDNISONE [Concomitant]
     Active Substance: PREDNISONE
     Dosage: 40 MG, 1X/DAY
     Route: 065
  32. PREDNISONE [Concomitant]
     Active Substance: PREDNISONE
     Dosage: 50 MG
  33. PREDNISONE [Concomitant]
     Active Substance: PREDNISONE
     Dosage: 40 MG, 1X/DAY
     Route: 065

REACTIONS (14)
  - Colitis ulcerative [Unknown]
  - Malaise [Unknown]
  - Drug level below therapeutic [Unknown]
  - Cough [Not Recovered/Not Resolved]
  - Pain [Unknown]
  - Illness [Unknown]
  - Condition aggravated [Recovered/Resolved]
  - COVID-19 [Unknown]
  - Nasopharyngitis [Not Recovered/Not Resolved]
  - Off label use [Unknown]
  - Off label use [Unknown]
  - Off label use [Unknown]
  - Intentional product use issue [Unknown]
  - Inappropriate schedule of product administration [Unknown]

NARRATIVE: CASE EVENT DATE: 20200101
